FAERS Safety Report 5682459-5 (Version None)
Quarter: 2008Q1

REPORT INFORMATION
  Report Type: 
  Country: None (occurrence: None)
  Receive Date: 20080327
  Receipt Date: 20080320
  Transmission Date: 20080703
  Serious: Yes (Other)
  Sender: FDA-Public Use
  Company Number: GB-AVENTIS-200811236EU

PATIENT
  Age: 57 Year
  Sex: Male

DRUGS (2)
  1. NATRILIX-SR [Suspect]
     Indication: HYPERTENSION
     Route: 048
     Dates: start: 20060628, end: 20070430
  2. DOXAZOSIN [Suspect]
     Indication: HYPERTENSION
     Route: 048
     Dates: start: 20060929, end: 20070531

REACTIONS (2)
  - ANXIETY [None]
  - PANIC ATTACK [None]
